FAERS Safety Report 4961036-5 (Version None)
Quarter: 2006Q1

REPORT INFORMATION
  Report Type: 
  Country: None (occurrence: None)
  Receive Date: 20060328
  Receipt Date: 20060315
  Transmission Date: 20060701
  Serious: Yes (Hospitalization)
  Sender: FDA-Public Use
  Company Number: 167-20785-05110059

PATIENT
  Age: 72 Year
  Sex: Male

DRUGS (10)
  1. THALIDOMIDE - PHARMION (THALIDOMIDE) (CAPSULES) [Suspect]
     Indication: SMALL CELL LUNG CANCER STAGE UNSPECIFIED
     Dosage: 100 MG, QD, ORAL; SEE IMAGE
     Route: 048
     Dates: start: 20050915, end: 20051024
  2. THALIDOMIDE - PHARMION (THALIDOMIDE) (CAPSULES) [Suspect]
     Indication: SMALL CELL LUNG CANCER STAGE UNSPECIFIED
     Dosage: 100 MG, QD, ORAL; SEE IMAGE
     Route: 048
     Dates: start: 20060105, end: 20060314
  3. THALIDOMIDE - PHARMION (THALIDOMIDE) (CAPSULES) [Suspect]
     Indication: SMALL CELL LUNG CANCER STAGE UNSPECIFIED
     Dosage: 100 MG, QD, ORAL; SEE IMAGE
     Route: 048
     Dates: start: 20051103
  4. CARBOPLATIN [Suspect]
     Indication: SMALL CELL LUNG CANCER STAGE UNSPECIFIED
     Dates: start: 20060105
  5. ETOPOSIDE [Suspect]
     Indication: SMALL CELL LUNG CANCER STAGE UNSPECIFIED
     Dates: start: 20060105
  6. ALLOPURINOL [Concomitant]
  7. LASIX [Concomitant]
  8. METOCLOPRAMIDE [Concomitant]
  9. TRIMETHOPRIM [Concomitant]
  10. NOZINAN (LEVOMEPROMAZINE) [Concomitant]

REACTIONS (11)
  - BLOOD ALKALINE PHOSPHATASE INCREASED [None]
  - BLOOD BILIRUBIN INCREASED [None]
  - BLOOD CALCIUM DECREASED [None]
  - BLOOD SODIUM DECREASED [None]
  - C-REACTIVE PROTEIN INCREASED [None]
  - CONFUSIONAL STATE [None]
  - CREATINE URINE INCREASED [None]
  - DRUG INEFFECTIVE [None]
  - HAEMOGLOBIN DECREASED [None]
  - HALLUCINATION [None]
  - NEUTROPHIL COUNT INCREASED [None]
